FAERS Safety Report 15529014 (Version 1)
Quarter: 2018Q4

REPORT INFORMATION
  Report Type: Report from Study
  Country: US (occurrence: US)
  Receive Date: 20181018
  Receipt Date: 20181018
  Transmission Date: 20190205
  Serious: No
  Sender: FDA-Public Use
  Company Number: US-AMGEN-USASL2018126302

PATIENT
  Age: 81 Year
  Sex: Male

DRUGS (2)
  1. REPATHA [Suspect]
     Active Substance: EVOLOCUMAB
     Indication: HYPERTENSION
  2. REPATHA [Suspect]
     Active Substance: EVOLOCUMAB
     Indication: GLYCOSYLATED HAEMOGLOBIN
     Dosage: 420 MG, QMO
     Route: 065

REACTIONS (1)
  - Off label use [Unknown]
